FAERS Safety Report 5901569-8 (Version None)
Quarter: 2008Q3

REPORT INFORMATION
  Report Type: 
  Country: None (occurrence: None)
  Receive Date: 20080929
  Receipt Date: 20080925
  Transmission Date: 20090109
  Serious: Yes (Other)
  Sender: FDA-Public Use
  Company Number: GB-RB-004396-08

PATIENT
  Age: 4 Year
  Sex: Female

DRUGS (1)
  1. SUBOXONE [Suspect]
     Indication: DRUG USE FOR UNKNOWN INDICATION
     Dosage: SUBOXONE 2 MG WAS ONLY TAKEN ONCE.
     Route: 048
     Dates: start: 20080916, end: 20080916

REACTIONS (4)
  - ACCIDENTAL EXPOSURE [None]
  - DELIRIUM [None]
  - MALAISE [None]
  - PYREXIA [None]
